FAERS Safety Report 7549795-9 (Version None)
Quarter: 2011Q2

REPORT INFORMATION
  Report Type: 
  Country: None (occurrence: None)
  Receive Date: 20110615
  Receipt Date: 20070416
  Transmission Date: 20111010
  Serious: Yes (Hospitalization, Other)
  Sender: FDA-Public Use
  Company Number: PHFR2004GB02234

PATIENT
  Sex: Male

DRUGS (2)
  1. CLOZAPINE [Suspect]
     Indication: SCHIZOPHRENIA
     Dosage: 475 MG DAILY
     Route: 048
     Dates: start: 19981216
  2. CLOZAPINE [Suspect]
     Dosage: 225 MG, BID
     Route: 048

REACTIONS (5)
  - URINARY TRACT INFECTION [None]
  - LOWER RESPIRATORY TRACT INFECTION [None]
  - ECZEMA [None]
  - CELLULITIS [None]
  - ECCHYMOSIS [None]
